FAERS Safety Report 19111898 (Version 2)
Quarter: 2023Q2

REPORT INFORMATION
  Report Type: Spontaneous
  Country: US (occurrence: US)
  Receive Date: 20210408
  Receipt Date: 20230405
  Transmission Date: 20230721
  Serious: Yes (Hospitalization)
  Sender: FDA-Public Use
  Company Number: US-SYMOGEN - AB-202000024

PATIENT
  Sex: Male

DRUGS (2)
  1. LEUKINE [Suspect]
     Active Substance: SARGRAMOSTIM
     Indication: Product used for unknown indication
     Dosage: 150 MCG UNDER THE SKIN EVERY 24 HOURS DAYS 6-12 OF 21 DAYS
     Route: 058
  2. STERILE WATER FOR INJECTION [Concomitant]
     Active Substance: WATER
     Indication: Product used for unknown indication
     Route: 065

REACTIONS (1)
  - Infection [Unknown]
